FAERS Safety Report 12310089 (Version 1)
Quarter: 2016Q2

REPORT INFORMATION
  Report Type: Spontaneous
  Country: PT (occurrence: PT)
  Receive Date: 20160427
  Receipt Date: 20160427
  Transmission Date: 20160815
  Serious: Yes (Other)
  Sender: FDA-Public Use
  Company Number: PT-ACTAVIS-2016-08434

PATIENT
  Age: 83 Year
  Sex: Male
  Weight: 70 kg

DRUGS (10)
  1. PACLITAXEL. [Suspect]
     Active Substance: PACLITAXEL
     Indication: SQUAMOUS CELL CARCINOMA
     Dosage: 110 MG, CYCLICAL (7 CYCLES) 88 MG (6 CYCLES) DILUTED IN 250 ML SALINE PERFUSION 1H
     Route: 042
     Dates: start: 20151222, end: 20160329
  2. PALEXIA [Concomitant]
     Active Substance: TAPENTADOL HYDROCHLORIDE
     Indication: PRODUCT USED FOR UNKNOWN INDICATION
     Dosage: UNK
     Route: 065
  3. PALONOSETRON [Concomitant]
     Active Substance: PALONOSETRON
     Indication: PRODUCT USED FOR UNKNOWN INDICATION
     Dosage: UNK
     Route: 065
  4. CLEMASTINA [Concomitant]
     Indication: PRODUCT USED FOR UNKNOWN INDICATION
     Dosage: UNK
     Route: 065
  5. CARBOPLATINA [Concomitant]
     Indication: SQUAMOUS CELL CARCINOMA
     Dosage: 160 MG, CYCLICAL WHEN IT WAS USED 110 MG OF PACLITAXEL AND 128MG WHEN IT WAS USED 88MG OF PACLITAXEL
     Route: 042
  6. PERMIXON [Concomitant]
     Active Substance: SAW PALMETTO
     Indication: BENIGN PROSTATIC HYPERPLASIA
     Dosage: UNK
     Route: 048
  7. RANITIDINE. [Concomitant]
     Active Substance: RANITIDINE
     Indication: PRODUCT USED FOR UNKNOWN INDICATION
     Dosage: UNK
     Route: 065
  8. DAFLON                             /02311201/ [Concomitant]
     Indication: PRODUCT USED FOR UNKNOWN INDICATION
     Dosage: UNK
     Route: 048
  9. PACLITAXEL HOSPIRA [Suspect]
     Active Substance: PACLITAXEL
     Indication: SQUAMOUS CELL CARCINOMA
     Dosage: 110 MG, CYCLICAL (7 CYCLES) AND 88MG (6 CYCLES) DILUTED IN 250 ML SALINE FOR IV INFUSION 1H
     Route: 042
     Dates: start: 20151222, end: 20160329
  10. HIDROCORTISONA                     /00028601/ [Concomitant]
     Indication: PRODUCT USED FOR UNKNOWN INDICATION
     Dosage: UNK
     Route: 065

REACTIONS (3)
  - Dysphonia [Recovering/Resolving]
  - Swelling [Recovered/Resolved]
  - Feeling hot [Recovered/Resolved]

NARRATIVE: CASE EVENT DATE: 20151222
